FAERS Safety Report 10046567 (Version 1)
Quarter: 2014Q1

REPORT INFORMATION
  Report Type: Spontaneous
  Country: US (occurrence: US)
  Receive Date: 20140331
  Receipt Date: 20140331
  Transmission Date: 20141002
  Serious: No
  Sender: FDA-Public Use
  Company Number: US-BIOGENIDEC-2014BI028247

PATIENT
  Sex: Male

DRUGS (6)
  1. TECFIDERA [Suspect]
     Indication: MULTIPLE SCLEROSIS
     Route: 048
     Dates: start: 201401
  2. LYRICA [Concomitant]
  3. LISINOPRIL [Concomitant]
  4. TIZANIDINE HCL [Concomitant]
  5. FLOMAX [Concomitant]
  6. VIT D [Concomitant]

REACTIONS (1)
  - Rhinorrhoea [Unknown]
